FAERS Safety Report 8067547-0 (Version None)
Quarter: 2012Q1

REPORT INFORMATION
  Report Type: 
  Country: None (occurrence: None)
  Receive Date: 20120124
  Receipt Date: 20120120
  Transmission Date: 20120608
  Serious: Yes (Death, Other)
  Sender: FDA-Public Use
  Company Number: CA-ASTRAZENECA-2011SE17831

PATIENT
  Age: 68 Year
  Sex: Male

DRUGS (12)
  1. CELEXA [Concomitant]
  2. CHOLESTEROL DRUGS [Concomitant]
  3. HYDROMORPH [Concomitant]
  4. PROSCAR [Concomitant]
  5. IRESSA [Suspect]
     Indication: LUNG NEOPLASM MALIGNANT
     Route: 048
     Dates: start: 20101101
  6. ADALAT CC [Concomitant]
  7. BLOOD PRESSURE DRUG [Concomitant]
  8. MAGNESIUM HYDROXIDE TAB [Concomitant]
     Dosage: PRN
  9. DIOVAN [Concomitant]
  10. INDAPAMIDE [Concomitant]
  11. LAXATIVE (SENOKOT COLACE) [Concomitant]
     Dosage: PRN
  12. CRESTOR [Concomitant]

REACTIONS (3)
  - PLEURAL EFFUSION [None]
  - DEATH [None]
  - DISEASE PROGRESSION [None]
